FAERS Safety Report 25740618 (Version 2)
Quarter: 2025Q4

REPORT INFORMATION
  Report Type: Report from Study
  Country: None (occurrence: EU)
  Receive Date: 20250829
  Receipt Date: 20251125
  Transmission Date: 20260118
  Serious: Yes (Other)
  Sender: ALNYLAM PHARMACEUTICALS
  Company Number: EU-ALNYLAM PHARMACEUTICALS, INC.-ALN-2025-005249

PATIENT

DRUGS (1)
  1. OXLUMO [Suspect]
     Active Substance: LUMASIRAN
     Indication: Product used for unknown indication
     Dosage: 189 MILLIGRAM
     Route: 065

REACTIONS (12)
  - Gastrostomy [Unknown]
  - Renal transplant [Unknown]
  - Laboratory test abnormal [Not Recovered/Not Resolved]
  - Procedural pain [Recovered/Resolved]
  - Insomnia [Unknown]
  - Disturbance in attention [Unknown]
  - Memory impairment [Unknown]
  - Fatigue [Unknown]
  - Palpitations [Unknown]
  - Hypertension [Unknown]
  - Sleep deficit [Unknown]
  - Hypervolaemia [Unknown]
